FAERS Safety Report 4939233-4 (Version None)
Quarter: 2006Q1

REPORT INFORMATION
  Report Type: 
  Country: None (occurrence: None)
  Receive Date: 20060306
  Receipt Date: 20060222
  Transmission Date: 20060701
  Serious: Yes (Hospitalization)
  Sender: FDA-Public Use
  Company Number: 2006BH003820

PATIENT
  Age: 92 Year
  Sex: Male

DRUGS (2)
  1. VANCOMYCIN [Suspect]
     Indication: STAPHYLOCOCCAL INFECTION
  2. TELCOPLANIN [Suspect]

REACTIONS (7)
  - CARDIAC FAILURE CONGESTIVE [None]
  - ELECTROCARDIOGRAM ABNORMAL [None]
  - EOSINOPHILIA [None]
  - HEPATIC FUNCTION ABNORMAL [None]
  - PLEURAL EFFUSION [None]
  - RASH [None]
  - VENTRICULAR HYPOKINESIA [None]
